FAERS Safety Report 5750166-6 (Version None)
Quarter: 2008Q2

REPORT INFORMATION
  Report Type: 
  Country: None (occurrence: None)
  Receive Date: 20080527
  Receipt Date: 20080515
  Transmission Date: 20081010
  Serious: Yes (Other)
  Sender: FDA-Public Use
  Company Number: US-PFIZER INC-2008042330

PATIENT
  Sex: Female
  Weight: 52.2 kg

DRUGS (1)
  1. GABAPENTIN [Suspect]
     Indication: CONVULSION

REACTIONS (3)
  - LOSS OF CONSCIOUSNESS [None]
  - SOMNOLENCE [None]
  - THERAPEUTIC RESPONSE UNEXPECTED [None]
